FAERS Safety Report 10475421 (Version 1)
Quarter: 2014Q3

REPORT INFORMATION
  Report Type: Spontaneous
  Country: US (occurrence: None)
  Receive Date: 20140924
  Receipt Date: 20140924
  Transmission Date: 20150326
  Serious: No
  Sender: FDA-Public Use
  Company Number: None

PATIENT
  Age: 26 Year
  Sex: Female
  Weight: 49.9 kg

DRUGS (1)
  1. TIOCONAZOLE [Suspect]
     Active Substance: TIOCONAZOLE
     Indication: FUNGAL INFECTION
     Route: 067
     Dates: start: 20140920, end: 20140921

REACTIONS (2)
  - Vulvovaginal erythema [None]
  - Vulvovaginal swelling [None]

NARRATIVE: CASE EVENT DATE: 20140920
